FAERS Safety Report 7730745-7 (Version None)
Quarter: 2011Q3

REPORT INFORMATION
  Report Type: 
  Country: None (occurrence: None)
  Receive Date: 20110906
  Receipt Date: 20110830
  Transmission Date: 20111222
  Serious: Yes (Death)
  Sender: FDA-Public Use
  Company Number: JP-GLAXOSMITHKLINE-B0743074A

PATIENT
  Age: 29 Year
  Sex: Female

DRUGS (13)
  1. ROZEREM [Concomitant]
     Route: 048
  2. SEROQUEL [Concomitant]
     Route: 048
  3. LULLAN [Concomitant]
     Route: 048
  4. ALLOID G [Concomitant]
     Route: 048
  5. LAMICTAL [Suspect]
     Indication: BIPOLAR DISORDER
     Dosage: 25MG ALTERNATE DAYS
     Route: 048
     Dates: start: 20110803, end: 20110816
  6. LUDIOMIL [Concomitant]
     Route: 048
  7. SILECE [Concomitant]
  8. CLONAZEPAM [Concomitant]
     Route: 048
  9. BROTIZOLAM [Concomitant]
     Route: 048
  10. VALERIN [Concomitant]
     Indication: BIPOLAR DISORDER
     Route: 048
  11. DORAL [Concomitant]
     Route: 048
  12. SEDIEL [Concomitant]
     Route: 048
  13. MUCOSTA [Concomitant]
     Route: 048

REACTIONS (5)
  - RASH [None]
  - CONVULSION [None]
  - ALTERED STATE OF CONSCIOUSNESS [None]
  - PYREXIA [None]
  - APALLIC SYNDROME [None]
